FAERS Safety Report 6292261-1 (Version None)
Quarter: 2009Q3

REPORT INFORMATION
  Report Type: 
  Country: None (occurrence: None)
  Receive Date: 20090731
  Receipt Date: 20090723
  Transmission Date: 20100115
  Serious: Yes (Other)
  Sender: FDA-Public Use
  Company Number: US-AMGEN-KDL259404

PATIENT
  Sex: Female

DRUGS (3)
  1. ENBREL [Suspect]
     Indication: PSORIATIC ARTHROPATHY
     Route: 058
     Dates: start: 20070601
  2. ENBREL [Suspect]
     Indication: PSORIASIS
  3. NEURONTIN [Concomitant]

REACTIONS (28)
  - ABDOMINAL DISCOMFORT [None]
  - ABNORMAL BEHAVIOUR [None]
  - ANGER [None]
  - ARTHRALGIA [None]
  - BALANCE DISORDER [None]
  - DISORIENTATION [None]
  - DIZZINESS [None]
  - DRUG INEFFECTIVE [None]
  - DRUG TOXICITY [None]
  - DYSPHAGIA [None]
  - FALL [None]
  - HYPERHIDROSIS [None]
  - ILLOGICAL THINKING [None]
  - INSOMNIA [None]
  - IRRITABILITY [None]
  - JOINT SPRAIN [None]
  - MEMORY IMPAIRMENT [None]
  - MOBILITY DECREASED [None]
  - MYALGIA [None]
  - NAUSEA [None]
  - PETIT MAL EPILEPSY [None]
  - POLLAKIURIA [None]
  - PSORIASIS [None]
  - PSORIATIC ARTHROPATHY [None]
  - SUICIDAL IDEATION [None]
  - SYNCOPE [None]
  - TOOTH ABSCESS [None]
  - TREMOR [None]
